FAERS Safety Report 24629734 (Version 1)
Quarter: 2024Q4

REPORT INFORMATION
  Report Type: Spontaneous
  Country: FR (occurrence: FR)
  Receive Date: 20241118
  Receipt Date: 20241118
  Transmission Date: 20250115
  Serious: Yes (Hospitalization)
  Sender: BOEHRINGER INGELHEIM
  Company Number: None

PATIENT
  Age: 3 Day
  Sex: Male
  Weight: 2.21 kg

DRUGS (6)
  1. VIRAMUNE [Suspect]
     Active Substance: NEVIRAPINE
     Indication: Prophylaxis against HIV infection
     Route: 048
     Dates: start: 20240921, end: 20240924
  2. RETROVIR [Suspect]
     Active Substance: ZIDOVUDINE
     Indication: Prophylaxis against HIV infection
     Route: 065
     Dates: start: 20240921, end: 20240924
  3. EPIVIR [Suspect]
     Active Substance: LAMIVUDINE
     Indication: Prophylaxis against HIV infection
     Route: 048
     Dates: start: 20240921, end: 20240924
  4. RIFAMYCIN [Concomitant]
     Active Substance: RIFAMYCIN
     Indication: Product used for unknown indication
  5. VITAMINE K1 CHEPLAPHARM 2 mg/0,2 ml NOURRISSONS, oral and injectable s [Concomitant]
     Indication: Product used for unknown indication
  6. DOLIPRANE [Concomitant]
     Active Substance: ACETAMINOPHEN
     Indication: Product used for unknown indication

REACTIONS (3)
  - Hepatic enzyme increased [Recovering/Resolving]
  - Hyperlactacidaemia [Recovering/Resolving]
  - Tremor [Recovering/Resolving]

NARRATIVE: CASE EVENT DATE: 20240924
